FAERS Safety Report 23257489 (Version 1)
Quarter: 2023Q4

REPORT INFORMATION
  Report Type: Spontaneous
  Country: US (occurrence: None)
  Receive Date: 20231201
  Receipt Date: 20231201
  Transmission Date: 20240110
  Serious: Yes (Other)
  Sender: FDA-Public Use
  Company Number: None

PATIENT
  Age: 60 Year
  Sex: Female

DRUGS (17)
  1. AMBRISENTAN [Suspect]
     Active Substance: AMBRISENTAN
     Indication: Pulmonary arterial hypertension
     Dosage: FREQUENCY : DAILY;?
     Route: 048
     Dates: start: 20230906
  2. TADALAFIL [Concomitant]
  3. SPIRIVA RESPIMAT [Concomitant]
  4. SULFASALAZINE [Concomitant]
  5. MONTELUKAST [Concomitant]
  6. ALVESCO HFA [Concomitant]
  7. TORSEMIDE [Concomitant]
  8. WIXELA INHUB [Concomitant]
  9. GLIPIZIDE [Concomitant]
  10. LISINOPRIL [Concomitant]
  11. LEVOTHYROXINE [Concomitant]
  12. ALLOPURINOL [Concomitant]
  13. DILTIAZEM [Concomitant]
  14. ATORVASTATIN [Concomitant]
  15. ASPIRIN [Concomitant]
  16. REQUIP [Concomitant]
     Active Substance: ROPINIROLE HYDROCHLORIDE
  17. LIDOCAINE TOPICAL PATCH [Concomitant]

REACTIONS (1)
  - Abdominal pain upper [None]

NARRATIVE: CASE EVENT DATE: 20231113
